FAERS Safety Report 7405149-7 (Version None)
Quarter: 2011Q2

REPORT INFORMATION
  Report Type: 
  Country: None (occurrence: None)
  Receive Date: 20110411
  Receipt Date: 20110331
  Transmission Date: 20111010
  Serious: Yes (Hospitalization)
  Sender: FDA-Public Use
  Company Number: IT-NOVOPROD-322958

PATIENT
  Sex: Male
  Weight: 81.4 kg

DRUGS (7)
  1. ASPIRIN [Concomitant]
  2. SIMVASTATIN [Concomitant]
     Dosage: 20 MG, QD
     Route: 048
     Dates: start: 20080605, end: 20101210
  3. VICTOZA [Suspect]
     Dosage: UNK
     Dates: start: 20110331
  4. METFORMINE [Concomitant]
     Dosage: 2 DF, QD
     Route: 048
     Dates: start: 20101020, end: 20101210
  5. ACTOPLUS MET [Concomitant]
  6. VICTOZA [Suspect]
     Indication: TYPE 2 DIABETES MELLITUS
     Dosage: 1.2 MG, QD
     Route: 058
     Dates: start: 20100923, end: 20101210
  7. GOPTEN [Concomitant]
     Dosage: 2 MG, QD
     Route: 048
     Dates: start: 20020418, end: 20101210

REACTIONS (4)
  - PANCREATITIS [None]
  - VIRAL INFECTION [None]
  - MALAISE [None]
  - PYREXIA [None]
